FAERS Safety Report 13133299 (Version 1)
Quarter: 2017Q1

REPORT INFORMATION
  Report Type: Spontaneous
  Country: US (occurrence: US)
  Receive Date: 20170119
  Receipt Date: 20170119
  Transmission Date: 20170428
  Serious: No
  Sender: FDA-Public Use
  Company Number: None

PATIENT
  Age: 7 Year
  Sex: Female
  Weight: 28.5 kg

DRUGS (1)
  1. ETHOSUXIMIDE 250MG/5ML [Suspect]
     Active Substance: ETHOSUXIMIDE
     Dates: start: 20160927

REACTIONS (1)
  - Therapy non-responder [None]
